FAERS Safety Report 13261513 (Version 3)
Quarter: 2017Q1

REPORT INFORMATION
  Report Type: Report from Study
  Country: TW (occurrence: TW)
  Receive Date: 20170222
  Receipt Date: 20170313
  Transmission Date: 20170428
  Serious: Yes (Other)
  Sender: FDA-Public Use
  Company Number: TW-ELI_LILLY_AND_COMPANY-TW201702008363

PATIENT
  Age: 51 Year
  Sex: Male
  Weight: 63 kg

DRUGS (7)
  1. MITOMYCIN C [Suspect]
     Active Substance: MITOMYCIN
     Indication: TONGUE NEOPLASM MALIGNANT STAGE UNSPECIFIED
     Dosage: 7.2 MG, UNK
     Route: 065
     Dates: end: 20170209
  2. CETUXIMAB. [Suspect]
     Active Substance: CETUXIMAB
     Indication: TONGUE NEOPLASM MALIGNANT STAGE UNSPECIFIED
     Dosage: 400 MG, OTHER
     Route: 065
     Dates: start: 20170119, end: 20170209
  3. CETUXIMAB. [Suspect]
     Active Substance: CETUXIMAB
     Dosage: UNK UNK, UNKNOWN
     Route: 065
     Dates: start: 20170301
  4. 5-FU                               /00098801/ [Suspect]
     Active Substance: FLUOROURACIL
     Indication: TONGUE NEOPLASM MALIGNANT STAGE UNSPECIFIED
     Dosage: 1800 MG, UNK
     Route: 065
     Dates: end: 20170209
  5. VINCRISTINE [Suspect]
     Active Substance: VINCRISTINE
     Indication: TONGUE NEOPLASM MALIGNANT STAGE UNSPECIFIED
     Dosage: 1.8 MG, UNK
     Route: 065
     Dates: end: 20170209
  6. CISPLATIN. [Suspect]
     Active Substance: CISPLATIN
     Indication: TONGUE NEOPLASM MALIGNANT STAGE UNSPECIFIED
     Dosage: 62.5 MG, UNK
     Route: 065
     Dates: end: 20170209
  7. BLEOCIN                            /00183901/ [Suspect]
     Active Substance: BLEOMYCIN SULFATE
     Indication: TONGUE NEOPLASM MALIGNANT STAGE UNSPECIFIED
     Dosage: 18 MG, UNK
     Route: 065
     Dates: end: 20170209

REACTIONS (3)
  - White blood cell count decreased [Recovered/Resolved]
  - Mucosal inflammation [Recovered/Resolved]
  - Off label use [Unknown]

NARRATIVE: CASE EVENT DATE: 20170209
